FAERS Safety Report 15391817 (Version 5)
Quarter: 2019Q2

REPORT INFORMATION
  Report Type: Spontaneous
  Country: US (occurrence: US)
  Receive Date: 20180917
  Receipt Date: 20190524
  Transmission Date: 20190711
  Serious: Yes (Hospitalization, Other)
  Sender: FDA-Public Use
  Company Number: US-PFIZER INC-2016035142

PATIENT
  Age: 69 Year
  Sex: Female
  Weight: 57 kg

DRUGS (7)
  1. REVATIO [Suspect]
     Active Substance: SILDENAFIL CITRATE
     Dosage: 40 MG, THRICE A DAY (2 TABLETS BY MOUTH 3 TIMES DAILY)
     Route: 048
  2. LETAIRIS [Concomitant]
     Active Substance: AMBRISENTAN
     Dosage: 10 MG, 1X/DAY
  3. REVATIO [Suspect]
     Active Substance: SILDENAFIL CITRATE
     Dosage: 20 MG, TWICE A DAY
     Route: 048
  4. REVATIO [Suspect]
     Active Substance: SILDENAFIL CITRATE
     Dosage: 120 MG, DAILY (20 MG-6 TIMES A DAY/6 PER DAY)
  5. REVATIO [Suspect]
     Active Substance: SILDENAFIL CITRATE
     Dosage: 6 PILLS, DAILY (2 TABLETS IN THE AM, 1 LUNCH, 1 DINNER AND 2 AT BEDTIME)
     Route: 048
     Dates: start: 2000
  6. REVATIO [Suspect]
     Active Substance: SILDENAFIL CITRATE
     Dosage: 40 MG, 3X/DAY
     Route: 048
  7. REVATIO [Suspect]
     Active Substance: SILDENAFIL CITRATE
     Indication: PULMONARY HYPERTENSION
     Dosage: 20 MG, THRICE A DAY
     Route: 048

REACTIONS (8)
  - Product use issue [Unknown]
  - Fall [Recovering/Resolving]
  - Intentional product use issue [Unknown]
  - Malaise [Unknown]
  - Hip fracture [Recovered/Resolved]
  - Joint dislocation [Recovering/Resolving]
  - Product dispensing error [Unknown]
  - Upper limb fracture [Not Recovered/Not Resolved]

NARRATIVE: CASE EVENT DATE: 201601
